FAERS Safety Report 12572632 (Version 1)
Quarter: 2016Q3

REPORT INFORMATION
  Report Type: Spontaneous
  Country: JP (occurrence: JP)
  Receive Date: 20160720
  Receipt Date: 20160720
  Transmission Date: 20161109
  Serious: Yes (Other)
  Sender: FDA-Public Use
  Company Number: JP-AMGEN-JPNSP2016092513

PATIENT
  Age: 6 Decade
  Sex: Female

DRUGS (1)
  1. ENBREL [Suspect]
     Active Substance: ETANERCEPT
     Indication: RHEUMATOID ARTHRITIS
     Dosage: 50 MG UNSPECIFIED DOSE INTERVAL
     Route: 058

REACTIONS (2)
  - Lupus nephritis [Unknown]
  - Pyrexia [Unknown]

NARRATIVE: CASE EVENT DATE: 200810
